FAERS Safety Report 8335225-6 (Version None)
Quarter: 2012Q2

REPORT INFORMATION
  Report Type: 
  Country: None (occurrence: None)
  Receive Date: 20120503
  Receipt Date: 20120420
  Transmission Date: 20120825
  Serious: Yes (Hospitalization, Other)
  Sender: FDA-Public Use
  Company Number: US-MYLANLABS-2010AC000024

PATIENT
  Age: 85 Year
  Sex: Female
  Weight: 68.04 kg

DRUGS (29)
  1. RETAVASE [Concomitant]
  2. LISINOPRIL [Concomitant]
  3. FUROSEMIDE [Concomitant]
  4. ASPIRIN [Concomitant]
  5. LOPRESSOR [Concomitant]
  6. MULTI-VITAMINS [Concomitant]
  7. LIPITOR [Concomitant]
  8. COLACE [Concomitant]
  9. VIOXX [Concomitant]
  10. NORVASC [Concomitant]
  11. FERROUS SULFATE TAB [Concomitant]
  12. VITAMIN B-12 [Concomitant]
  13. INSULIN [Concomitant]
  14. HEPARIN [Concomitant]
  15. RESTORIL [Concomitant]
  16. ZESTRIL [Concomitant]
  17. PROTONIX [Concomitant]
  18. ASPIRIN [Concomitant]
  19. INNOLET [Concomitant]
  20. DIGOXIN [Suspect]
     Route: 048
  21. AMARYL [Concomitant]
  22. TAPAZOLE [Concomitant]
  23. PROVERA [Concomitant]
  24. METHIMAZOLE [Concomitant]
  25. MILK OF MAGNESIA TAB [Concomitant]
  26. NITROGLYCERIN [Concomitant]
  27. GLUCOPHAGE [Concomitant]
  28. ASPIRIN [Concomitant]
  29. HUMULIN INSULIN [Concomitant]

REACTIONS (61)
  - HERPES ZOSTER [None]
  - LEFT VENTRICULAR HYPERTROPHY [None]
  - VISUAL ACUITY REDUCED [None]
  - ARTHRALGIA [None]
  - TREMOR [None]
  - ORBITAL OEDEMA [None]
  - EPIGASTRIC DISCOMFORT [None]
  - ECONOMIC PROBLEM [None]
  - CORONARY ARTERY DISEASE [None]
  - CHEST X-RAY ABNORMAL [None]
  - NAUSEA [None]
  - HYPOTENSION [None]
  - BASEDOW'S DISEASE [None]
  - HYPERTENSION [None]
  - TIC [None]
  - HYPERPLASIA [None]
  - CHEST PAIN [None]
  - CARDIAC FAILURE CONGESTIVE [None]
  - INCREASED UPPER AIRWAY SECRETION [None]
  - DILATATION ATRIAL [None]
  - CUTIS LAXA [None]
  - BLOOD GLUCOSE INCREASED [None]
  - LABORATORY TEST ABNORMAL [None]
  - CARDIAC MURMUR [None]
  - NOCTURIA [None]
  - LOSS OF CONSCIOUSNESS [None]
  - CHEST DISCOMFORT [None]
  - CARDIAC VALVE DISEASE [None]
  - HEART INJURY [None]
  - PULMONARY HYPERTENSION [None]
  - ECHOCARDIOGRAM ABNORMAL [None]
  - VENTRICULAR HYPOKINESIA [None]
  - CATARACT [None]
  - BACK PAIN [None]
  - VOMITING [None]
  - ATRIAL FIBRILLATION [None]
  - PERICARDIAL RUB [None]
  - EMOTIONAL DISTRESS [None]
  - DYSPNOEA [None]
  - MICROCYTIC ANAEMIA [None]
  - PAIN [None]
  - ERUCTATION [None]
  - MYOCARDIAL INFARCTION [None]
  - ILL-DEFINED DISORDER [None]
  - TINNITUS [None]
  - POLLAKIURIA [None]
  - DYSPEPSIA [None]
  - EJECTION FRACTION DECREASED [None]
  - ATRIOVENTRICULAR BLOCK FIRST DEGREE [None]
  - OPHTHALMOLOGICAL EXAMINATION ABNORMAL [None]
  - INJURY [None]
  - SYNCOPE [None]
  - TYPE 2 DIABETES MELLITUS [None]
  - HYPOTHYROIDISM [None]
  - GOITRE [None]
  - ISCHAEMIC CARDIOMYOPATHY [None]
  - HYPERTHYROIDISM [None]
  - RENAL FAILURE CHRONIC [None]
  - AKINESIA [None]
  - ELECTROCARDIOGRAM ST SEGMENT DEPRESSION [None]
  - BUNDLE BRANCH BLOCK LEFT [None]
